FAERS Safety Report 13104252 (Version 1)
Quarter: 2017Q1

REPORT INFORMATION
  Report Type: Spontaneous
  Country: US (occurrence: US)
  Receive Date: 20170111
  Receipt Date: 20170111
  Transmission Date: 20170428
  Serious: Yes (Other)
  Sender: FDA-Public Use
  Company Number: US-AMGEN-USASP2017001747

PATIENT
  Age: 89 Year
  Sex: Female

DRUGS (1)
  1. PROLIA [Suspect]
     Active Substance: DENOSUMAB
     Indication: PRODUCT USED FOR UNKNOWN INDICATION
     Dosage: UNK
     Route: 065

REACTIONS (9)
  - Arrhythmia [Unknown]
  - Wrist fracture [Unknown]
  - Eating disorder [Unknown]
  - Malaise [Unknown]
  - Tooth disorder [Unknown]
  - Adverse event [Unknown]
  - Fall [Unknown]
  - Oral pain [Unknown]
  - Pulse abnormal [Unknown]
